FAERS Safety Report 25899764 (Version 1)
Quarter: 2025Q4

REPORT INFORMATION
  Report Type: Spontaneous
  Country: US (occurrence: US)
  Receive Date: 20251009
  Receipt Date: 20251009
  Transmission Date: 20260118
  Serious: No
  Sender: AUROBINDO
  Company Number: US-AUROBINDO-AUR-APL-2025-015948

PATIENT
  Age: 73 Year
  Sex: Male
  Weight: 91.62 kg

DRUGS (1)
  1. ALFUZOSIN HYDROCHLORIDE EXTENDED RELEASE [Suspect]
     Active Substance: ALFUZOSIN HYDROCHLORIDE
     Indication: Prostatomegaly
     Dosage: 10 MILLIGRAM, AT BED TIME
     Route: 048

REACTIONS (2)
  - Product shape issue [Unknown]
  - Product use complaint [Not Recovered/Not Resolved]
